FAERS Safety Report 16005922 (Version 1)
Quarter: 2019Q1

REPORT INFORMATION
  Report Type: Spontaneous
  Country: US (occurrence: US)
  Receive Date: 20190226
  Receipt Date: 20190226
  Transmission Date: 20190418
  Serious: Yes (Other)
  Sender: FDA-Public Use
  Company Number: None

PATIENT
  Age: 80 Year
  Sex: Female
  Weight: 61.69 kg

DRUGS (2)
  1. LETROZOLE 2.5 MG [Concomitant]
     Active Substance: LETROZOLE
     Dates: start: 20160302
  2. IBRANCE [Suspect]
     Active Substance: PALBOCICLIB
     Indication: BREAST CANCER FEMALE
     Route: 048
     Dates: start: 20160302

REACTIONS (1)
  - Disease progression [None]
